FAERS Safety Report 19861698 (Version 1)
Quarter: 2021Q3

REPORT INFORMATION
  Report Type: Spontaneous
  Country: AR (occurrence: AR)
  Receive Date: 20210921
  Receipt Date: 20210921
  Transmission Date: 20211014
  Serious: Yes (Disabling, Other)
  Sender: FDA-Public Use
  Company Number: NVSC2021AR212627

PATIENT
  Age: 40 Year
  Sex: Male

DRUGS (2)
  1. TEGRETOL [Suspect]
     Active Substance: CARBAMAZEPINE
     Indication: EPILEPSY
     Dosage: 4 DF, QD, STARTED SINCE HE WAS 15 YEARS OLD AND STOPPED 7 YEARS AGO APPROXIMATELY
     Route: 065
  2. TEGRETOL [Suspect]
     Active Substance: CARBAMAZEPINE
     Dosage: 4 DF, QD
     Route: 065

REACTIONS (4)
  - Epilepsy [Unknown]
  - Speech disorder [Unknown]
  - Intellectual disability [Unknown]
  - Gait disturbance [Unknown]
